FAERS Safety Report 5082809-7 (Version None)
Quarter: 2006Q3

REPORT INFORMATION
  Report Type: 
  Country: None (occurrence: None)
  Receive Date: 20060816
  Receipt Date: 20060816
  Transmission Date: 20061208
  Serious: Yes (Hospitalization, Disabling)
  Sender: FDA-Public Use
  Company Number: None

PATIENT
  Age: 62 Year
  Sex: Female
  Weight: 63.5 kg

DRUGS (14)
  1. IODIXANOL 320 MG1/ ML AMERSHAM HEALTH [Suspect]
     Indication: COMPUTERISED TOMOGRAM
     Dosage: 150ML   ONCE    IV
     Route: 042
     Dates: start: 20060703, end: 20060703
  2. LEVOFLOXACIN [Concomitant]
  3. VANCOMYCIN [Concomitant]
  4. MULTI-VITAMIN [Concomitant]
  5. VALPROIC ACID [Concomitant]
  6. ESCITALOPRAM [Concomitant]
  7. FOLIC ACID [Concomitant]
  8. ASPIRIN [Concomitant]
  9. HEPARIN [Concomitant]
  10. ESOMEPRAZOLE MAGNESIUM [Concomitant]
  11. ACETAMINOPHEN [Concomitant]
  12. PREDNISONE [Concomitant]
  13. THIAMINE [Concomitant]
  14. PIPERCILLIN/TAZOBACTAM [Concomitant]

REACTIONS (3)
  - PLEURAL EFFUSION [None]
  - PYREXIA [None]
  - RENAL FAILURE ACUTE [None]
